FAERS Safety Report 20859872 (Version 1)
Quarter: 2022Q2

REPORT INFORMATION
  Report Type: Other
  Country: NL (occurrence: None)
  Receive Date: 20220523
  Receipt Date: 20220523
  Transmission Date: 20220721
  Serious: No
  Sender: FDA-Public Use
  Company Number: NL-ROCHE-3102251

PATIENT
  Age: 54 Year
  Sex: Female
  Weight: 64 kg

DRUGS (18)
  1. OCRELIZUMAB [Suspect]
     Active Substance: OCRELIZUMAB
     Indication: Primary progressive multiple sclerosis
     Dosage: DOSE OF STUDY DRUG FIRST ADMINISTERED 250 ML
     Route: 042
     Dates: start: 20190923
  2. OCRELIZUMAB [Suspect]
     Active Substance: OCRELIZUMAB
     Indication: Relapsing-remitting multiple sclerosis
  3. MOMETASONE [Concomitant]
     Active Substance: MOMETASONE
  4. FORMOTEROL [Concomitant]
     Active Substance: FORMOTEROL
  5. MONTELUKAST [Concomitant]
     Active Substance: MONTELUKAST SODIUM
  6. BISOPROLOL [Concomitant]
     Active Substance: BISOPROLOL
  7. MIRABEGRON [Concomitant]
     Active Substance: MIRABEGRON
  8. HYDROXOCOBALAMIN [Concomitant]
     Active Substance: HYDROXOCOBALAMIN
  9. CHOLECALCIFEROL [Concomitant]
     Active Substance: CHOLECALCIFEROL
  10. LEVOCETIRIZINE [Concomitant]
     Active Substance: LEVOCETIRIZINE
  11. DILTIAZEM [Concomitant]
     Active Substance: DILTIAZEM
  12. DEXTRAN 70;HYPROMELLOSE [Concomitant]
  13. GLATIRAMER [Concomitant]
     Active Substance: GLATIRAMER
  14. ACETAMINOPHEN [Concomitant]
     Active Substance: ACETAMINOPHEN
  15. DICLOFENAC [Concomitant]
     Active Substance: DICLOFENAC
  16. BACLOFEN [Concomitant]
     Active Substance: BACLOFEN
  17. PANZYTRAT [Concomitant]
  18. OMEPRAZOLE [Concomitant]
     Active Substance: OMEPRAZOLE

REACTIONS (1)
  - COVID-19 [Recovered/Resolved]

NARRATIVE: CASE EVENT DATE: 20220209
